FAERS Safety Report 9768243 (Version 3)
Quarter: 2013Q4

REPORT INFORMATION
  Report Type: Report from Study
  Country: DE (occurrence: DE)
  Receive Date: 20131217
  Receipt Date: 20131219
  Transmission Date: 20140711
  Serious: Yes (Hospitalization, Other)
  Sender: FDA-Public Use
  Company Number: DE-SA-THYM-1002911

PATIENT
  Age: 62 Year
  Sex: Female
  Weight: 84.3 kg

DRUGS (16)
  1. ANTI-THYMOCYTE GLOBULIN (RABBIT) [Suspect]
     Indication: IMMUNOSUPPRESSION
     Dosage: 125 MG, TID
     Route: 042
     Dates: start: 20111003, end: 20111004
  2. TACROLIMUS [Suspect]
     Indication: IMMUNOSUPPRESSION
     Dosage: 3 MG, TID
     Route: 048
     Dates: start: 20111002
  3. MYCOPHENOLATE MOFETIL [Suspect]
     Indication: IMMUNOSUPPRESSION
     Dosage: 500 MG, TID
     Route: 048
     Dates: start: 20111002
  4. PREDNISOLONE [Suspect]
     Indication: IMMUNOSUPPRESSION
     Dosage: 25 MG, TID
     Route: 048
     Dates: start: 20111001
  5. ARANESP [Concomitant]
     Dosage: 80 MCG, UNK
     Route: 065
     Dates: start: 20111101
  6. METOPROLOL SUCCINATE [Concomitant]
     Dosage: UNK
     Route: 065
     Dates: start: 20111025
  7. FUROSEMIDE [Concomitant]
     Dosage: 40 MG, UNK
     Dates: start: 20111025
  8. CEFUROXIME [Concomitant]
     Dosage: 250 MG, UNK
     Route: 065
     Dates: start: 20111024
  9. NITROLINGUAL [Concomitant]
     Dosage: UNK
     Route: 065
     Dates: start: 20101112
  10. MAGNESIUM HYDROGEN ASPARTATE [Concomitant]
     Dosage: UNK
     Route: 065
     Dates: start: 20111024
  11. FLUVASTATIN [Concomitant]
     Dosage: 80 MG, UNK
     Route: 065
     Dates: start: 20111024
  12. PANTOZOL [Concomitant]
     Dosage: 40 MG, UNK
     Route: 065
     Dates: start: 20111024
  13. VALCYTE [Concomitant]
     Dosage: 450 MG, UNK
     Route: 065
     Dates: start: 20111024
  14. COTRIM [Concomitant]
     Dosage: 480 MG, UNK
     Route: 065
     Dates: start: 20111024
  15. MIMPARA [Concomitant]
     Dosage: 60 MG, UNK
     Route: 065
     Dates: start: 20111024
  16. ASS [Concomitant]
     Dosage: 100 MG, UNK
     Route: 065
     Dates: start: 20100406

REACTIONS (9)
  - Blood creatinine increased [Recovered/Resolved]
  - Pyelocaliectasis [Unknown]
  - Renal failure acute [Recovered/Resolved]
  - Obstructive uropathy [Recovered/Resolved]
  - Ureteric stenosis [Recovered/Resolved]
  - Urinary tract infection [Recovered/Resolved]
  - Urinary tract infection [Recovered/Resolved with Sequelae]
  - Pyrexia [Unknown]
  - Diarrhoea [Unknown]
